FAERS Safety Report 20090726 (Version 1)
Quarter: 2021Q4

REPORT INFORMATION
  Report Type: Spontaneous
  Country: DE (occurrence: DE)
  Receive Date: 20211119
  Receipt Date: 20211119
  Transmission Date: 20220303
  Serious: Yes (Other)
  Sender: FDA-Public Use
  Company Number: None

PATIENT
  Age: 57 Year
  Sex: Female
  Weight: 68 kg

DRUGS (1)
  1. SULFAMETHOXAZOLE\TRIMETHOPRIM [Suspect]
     Active Substance: SULFAMETHOXAZOLE\TRIMETHOPRIM
     Indication: Urinary tract infection
     Dosage: 2 DOSAGE FORMS DAILY; 960MG 1-0-1,PC: 04150037585592 ?FOR ACTIVE INGREDIENT SULFAMETHOXAZOLE THE STR
     Route: 048
     Dates: start: 20210922, end: 20210925

REACTIONS (5)
  - Deafness unilateral [Not Recovered/Not Resolved]
  - Dizziness [Unknown]
  - Tinnitus [Unknown]
  - Somnolence [Unknown]
  - Nausea [Unknown]

NARRATIVE: CASE EVENT DATE: 20210901
